FAERS Safety Report 4431632-2 (Version None)
Quarter: 2004Q3

REPORT INFORMATION
  Report Type: 
  Country: None (occurrence: None)
  Receive Date: 20040721
  Receipt Date: 20040217
  Transmission Date: 20050211
  Serious: Yes (Hospitalization)
  Sender: FDA-Public Use
  Company Number: WAES 0402USA01315

PATIENT
  Age: 62 Year
  Sex: Male

DRUGS (2)
  1. VIOXX [Suspect]
     Dosage: PO
     Route: 048
     Dates: end: 20031201
  2. CELEBREX [Suspect]

REACTIONS (1)
  - RENAL FAILURE ACUTE [None]
